FAERS Safety Report 9467376 (Version 1)
Quarter: 2013Q3

REPORT INFORMATION
  Report Type: Spontaneous
  Country: US (occurrence: None)
  Receive Date: 20130819
  Receipt Date: 20130819
  Transmission Date: 20140515
  Serious: No
  Sender: FDA-Public Use
  Company Number: None

PATIENT
  Sex: 0

DRUGS (1)
  1. MINOXIDIL [Suspect]

REACTIONS (6)
  - Local swelling [None]
  - Paraesthesia [None]
  - Dyspnoea [None]
  - Palpitations [None]
  - Asthenia [None]
  - Dizziness [None]
